FAERS Safety Report 22021383 (Version 1)
Quarter: 2023Q1

REPORT INFORMATION
  Report Type: Spontaneous
  Country: US (occurrence: None)
  Receive Date: 20230219
  Receipt Date: 20230219
  Transmission Date: 20230418
  Serious: Yes (Life-Threatening)
  Sender: FDA-Public Use
  Company Number: None

PATIENT
  Age: 48 Year
  Sex: Female
  Weight: 76.95 kg

DRUGS (7)
  1. PAXLOVID [Suspect]
     Active Substance: NIRMATRELVIR\RITONAVIR
     Dates: start: 20230124, end: 20230125
  2. AZATHIOPRINE [Concomitant]
     Active Substance: AZATHIOPRINE
  3. SYNTHROID [Concomitant]
     Active Substance: LEVOTHYROXINE SODIUM
  4. ZOLOFT [Concomitant]
     Active Substance: SERTRALINE HYDROCHLORIDE
  5. ENBREL [Concomitant]
     Active Substance: ETANERCEPT
  6. VITAMINS [Concomitant]
     Active Substance: VITAMINS
  7. OMEGA 3 [Concomitant]
     Active Substance: CAPSAICIN

REACTIONS (3)
  - Urticaria [None]
  - Wheezing [None]
  - Anaphylactic reaction [None]

NARRATIVE: CASE EVENT DATE: 20230124
